FAERS Safety Report 8541666-4 (Version None)
Quarter: 2012Q3

REPORT INFORMATION
  Report Type: 
  Country: None (occurrence: None)
  Receive Date: 20120726
  Receipt Date: 20120717
  Transmission Date: 20120928
  Serious: Yes (Other)
  Sender: FDA-Public Use
  Company Number: JP-VIIV HEALTHCARE LIMITED-B0815925A

PATIENT
  Age: 50 Year
  Sex: Male
  Weight: 52 kg

DRUGS (11)
  1. TENOFOVIR DISOPROXIL FUMARATE [Suspect]
     Indication: HIV INFECTION
     Route: 048
     Dates: start: 20050701, end: 20081101
  2. EPIVIR [Suspect]
     Indication: HIV INFECTION
     Route: 048
     Dates: start: 20050501, end: 20100801
  3. EPIVIR [Suspect]
     Dosage: 150MG PER DAY
     Route: 048
     Dates: start: 20100801
  4. ZIAGEN [Suspect]
     Dosage: 600MG PER DAY
     Route: 048
     Dates: start: 20100801
  5. ATAZANAVIR [Suspect]
     Dosage: 300MG PER DAY
     Route: 048
     Dates: start: 20100801
  6. ZIAGEN [Suspect]
     Indication: HIV INFECTION
     Route: 048
     Dates: start: 20081101, end: 20100801
  7. RETROVIR [Suspect]
     Indication: HIV INFECTION
     Route: 048
     Dates: start: 20050501, end: 20050701
  8. ATAZANAVIR [Suspect]
     Indication: HIV INFECTION
     Route: 048
     Dates: start: 20050701, end: 20100801
  9. RITONAVIR [Suspect]
     Indication: HIV INFECTION
     Route: 048
     Dates: start: 20050701, end: 20100801
  10. EFAVIRENZ [Suspect]
     Indication: HIV INFECTION
     Route: 048
     Dates: start: 20050501, end: 20050701
  11. RITONAVIR [Suspect]
     Dosage: 100MG PER DAY
     Route: 048
     Dates: start: 20100801

REACTIONS (2)
  - TUBULOINTERSTITIAL NEPHRITIS [None]
  - HALLUCINATION [None]
